FAERS Safety Report 19080713 (Version 1)
Quarter: 2021Q1

REPORT INFORMATION
  Report Type: Spontaneous
  Country: US (occurrence: US)
  Receive Date: 20210331
  Receipt Date: 20210331
  Transmission Date: 20210420
  Serious: Yes (Other)
  Sender: FDA-Public Use
  Company Number: US-PURDUE-USA-2020-0222623

PATIENT
  Sex: Male

DRUGS (1)
  1. OXYCONTIN [Suspect]
     Active Substance: OXYCODONE HYDROCHLORIDE
     Indication: PAIN
     Dosage: 60 MG, Q6? 8H
     Route: 048

REACTIONS (14)
  - Erectile dysfunction [Unknown]
  - Heart rate irregular [Unknown]
  - Feeling abnormal [Unknown]
  - Drug withdrawal syndrome [Unknown]
  - Drug dependence [Unknown]
  - Amnesia [Unknown]
  - Pain [Unknown]
  - Illness [Unknown]
  - Anger [Unknown]
  - Overdose [Unknown]
  - Learning disability [Unknown]
  - Cardiac disorder [Unknown]
  - Disturbance in attention [Unknown]
  - Libido decreased [Unknown]

NARRATIVE: CASE EVENT DATE: 2019
